FAERS Safety Report 26180561 (Version 1)
Quarter: 2025Q4

REPORT INFORMATION
  Report Type: Spontaneous
  Country: US (occurrence: US)
  Receive Date: 20251219
  Receipt Date: 20251219
  Transmission Date: 20260118
  Serious: Yes (Other)
  Sender: DR REDDYS
  Company Number: US-DRL-USA-USA/2025/12/019133

PATIENT
  Age: 23 Year
  Sex: Female

DRUGS (10)
  1. CYCLOPHOSPHAMIDE [Suspect]
     Active Substance: CYCLOPHOSPHAMIDE
     Indication: Ewing^s sarcoma
  2. CYCLOPHOSPHAMIDE [Suspect]
     Active Substance: CYCLOPHOSPHAMIDE
     Indication: Mediastinum neoplasm
  3. DOXORUBICIN [Suspect]
     Active Substance: DOXORUBICIN
     Indication: Ewing^s sarcoma
  4. DOXORUBICIN [Suspect]
     Active Substance: DOXORUBICIN
     Indication: Mediastinum neoplasm
  5. ETOPOSIDE [Suspect]
     Active Substance: ETOPOSIDE
     Indication: Ewing^s sarcoma
  6. ETOPOSIDE [Suspect]
     Active Substance: ETOPOSIDE
     Indication: Mediastinum neoplasm
  7. VINCRISTINE [Suspect]
     Active Substance: VINCRISTINE
     Indication: Ewing^s sarcoma
  8. VINCRISTINE [Suspect]
     Active Substance: VINCRISTINE
     Indication: Mediastinum neoplasm
  9. IFOSFAMIDE [Suspect]
     Active Substance: IFOSFAMIDE
     Indication: Ewing^s sarcoma
  10. IFOSFAMIDE [Suspect]
     Active Substance: IFOSFAMIDE
     Indication: Mediastinum neoplasm

REACTIONS (3)
  - Thrombocytopenia [Unknown]
  - Fatigue [Unknown]
  - Product use in unapproved indication [Unknown]
